FAERS Safety Report 18298260 (Version 7)
Quarter: 2021Q2

REPORT INFORMATION
  Report Type: Spontaneous
  Country: US (occurrence: US)
  Receive Date: 20200922
  Receipt Date: 20210429
  Transmission Date: 20210717
  Serious: No
  Sender: FDA-Public Use
  Company Number: US-PFIZER INC-2020362137

PATIENT
  Age: 29 Year
  Sex: Female
  Weight: 69.98 kg

DRUGS (1)
  1. BUPIVACAINE HCL [Suspect]
     Active Substance: BUPIVACAINE HYDROCHLORIDE
     Indication: CAESAREAN SECTION
     Dosage: UNK
     Route: 037
     Dates: start: 20200924, end: 20200924

REACTIONS (1)
  - Drug ineffective [Recovered/Resolved]

NARRATIVE: CASE EVENT DATE: 20200924
